FAERS Safety Report 14528005 (Version 3)
Quarter: 2018Q1

REPORT INFORMATION
  Report Type: Spontaneous
  Country: JP (occurrence: JP)
  Receive Date: 20180213
  Receipt Date: 20180321
  Transmission Date: 20180509
  Serious: Yes (Other)
  Sender: FDA-Public Use
  Company Number: JP-ROCHE-2070887

PATIENT
  Age: 69 Year
  Sex: Female
  Weight: 51 kg

DRUGS (10)
  1. EPINASTINE. [Concomitant]
     Active Substance: EPINASTINE HYDROCHLORIDE
     Dosage: DOSAGE WAS UNCERTAIN.
     Route: 065
  2. LOCHOL (JAPAN) [Concomitant]
     Dosage: DOSAGE WAS UNCERTAIN.
     Route: 065
  3. MUCODYNE [Concomitant]
     Active Substance: CARBOCYSTEINE
     Dosage: DOSAGE WAS UNCERTAIN.
     Route: 048
     Dates: start: 20180130, end: 20180204
  4. TAMIFLU [Suspect]
     Active Substance: OSELTAMIVIR PHOSPHATE
     Indication: INFLUENZA
     Route: 048
     Dates: start: 20180130, end: 20180130
  5. TRANSAMIN [Concomitant]
     Active Substance: TRANEXAMIC ACID
     Dosage: DOSAGE WAS UNCERTAIN.
     Route: 048
     Dates: start: 20180130, end: 20180204
  6. DOMPERIDONE [Concomitant]
     Active Substance: DOMPERIDONE
  7. MICARDIS [Concomitant]
     Active Substance: TELMISARTAN
     Dosage: DOSAGE WAS UNCERTAIN.
     Route: 065
  8. HUSTAZOL (JAPAN) [Concomitant]
     Dosage: DOSAGE WAS UNCERTAIN.
     Route: 065
  9. LACTOMIN [Concomitant]
     Active Substance: LACTOBACILLUS ACIDOPHILUS
     Route: 065
     Dates: start: 20180131, end: 20180204
  10. PL [Concomitant]
     Active Substance: ACETAMINOPHEN\CAFFEINE\PROMETHAZINE\SALICYLAMIDE
     Dosage: DOSAGE WAS UNCERTAIN.
     Route: 048
     Dates: start: 20180130, end: 20180204

REACTIONS (3)
  - Vomiting [Recovering/Resolving]
  - Seizure [Recovered/Resolved]
  - Loss of consciousness [Recovered/Resolved]

NARRATIVE: CASE EVENT DATE: 20180130
